FAERS Safety Report 12210008 (Version 1)
Quarter: 2016Q1

REPORT INFORMATION
  Report Type: Report from Study
  Country: ID (occurrence: ID)
  Receive Date: 20160325
  Receipt Date: 20160325
  Transmission Date: 20160526
  Serious: Yes (Death, Hospitalization, Other)
  Sender: FDA-Public Use
  Company Number: ID-ROCHE-1579195

PATIENT
  Age: 60 Year
  Sex: Female

DRUGS (1)
  1. AVASTIN [Suspect]
     Active Substance: BEVACIZUMAB
     Indication: OVARIAN CANCER
     Route: 065
     Dates: end: 201506

REACTIONS (20)
  - Carbohydrate antigen 125 increased [Unknown]
  - Electrolyte depletion [Unknown]
  - Oedema peripheral [Not Recovered/Not Resolved]
  - Metastases to gastrointestinal tract [Unknown]
  - Blood pressure decreased [Unknown]
  - Asthenia [Not Recovered/Not Resolved]
  - Diarrhoea [Not Recovered/Not Resolved]
  - Pyrexia [Unknown]
  - Nausea [Unknown]
  - Cardiac failure [Fatal]
  - Electrolyte imbalance [Fatal]
  - Abdominal adhesions [Unknown]
  - Vomiting [Unknown]
  - Pain [Unknown]
  - Hypoalbuminaemia [Not Recovered/Not Resolved]
  - General physical health deterioration [Unknown]
  - Metastases to liver [Unknown]
  - Seizure [Unknown]
  - Dyspnoea [Fatal]
  - Pneumonia [Unknown]

NARRATIVE: CASE EVENT DATE: 201506
